FAERS Safety Report 22246225 (Version 1)
Quarter: 2023Q2

REPORT INFORMATION
  Report Type: Spontaneous
  Country: CN (occurrence: CN)
  Receive Date: 20230424
  Receipt Date: 20230424
  Transmission Date: 20230721
  Serious: Yes (Hospitalization, Other)
  Sender: FDA-Public Use
  Company Number: CN-PFIZER INC-PV202300072823

PATIENT
  Age: 8 Year
  Sex: Male
  Weight: 30 kg

DRUGS (2)
  1. METHOTREXATE SODIUM [Suspect]
     Active Substance: METHOTREXATE SODIUM
     Indication: Chemotherapy
     Dosage: 3.4 G, 1X/DAY
     Route: 041
     Dates: start: 20230404, end: 20230405
  2. METHOTREXATE SODIUM [Suspect]
     Active Substance: METHOTREXATE SODIUM
     Indication: Neoplasm malignant

REACTIONS (2)
  - Liver injury [Recovering/Resolving]
  - Hepatic function abnormal [Recovering/Resolving]

NARRATIVE: CASE EVENT DATE: 20230408
